FAERS Safety Report 23473961 (Version 1)
Quarter: 2024Q1

REPORT INFORMATION
  Report Type: Spontaneous
  Country: CN (occurrence: CN)
  Receive Date: 20240203
  Receipt Date: 20240203
  Transmission Date: 20240410
  Serious: Yes (Hospitalization)
  Sender: FDA-Public Use
  Company Number: CN-PRINSTON PHARMACEUTICAL INC.-2024PRN00037

PATIENT
  Age: 59 Year
  Sex: Male

DRUGS (3)
  1. IRBESARTAN AND HYDROCHLOROTHIAZIDE [Suspect]
     Active Substance: HYDROCHLOROTHIAZIDE\IRBESARTAN
     Indication: Hypertension
     Dosage: TWICE
     Route: 048
     Dates: start: 2021
  2. LOSARTAN POTASSIUM AND HYDROCHLOROTHIAZIDE [Suspect]
     Active Substance: HYDROCHLOROTHIAZIDE\LOSARTAN POTASSIUM
     Indication: Hypertension
     Dosage: TWICE
     Route: 048
     Dates: start: 2021
  3. AMLODIPINE [Concomitant]
     Active Substance: AMLODIPINE BESYLATE
     Indication: Hypertension
     Dosage: UNK

REACTIONS (3)
  - Anaphylactic shock [Recovered/Resolved]
  - Capillary leak syndrome [Recovered/Resolved]
  - Pulmonary oedema [Recovered/Resolved]

NARRATIVE: CASE EVENT DATE: 20210101
